FAERS Safety Report 20028251 (Version 3)
Quarter: 2021Q4

REPORT INFORMATION
  Report Type: Spontaneous
  Country: JP (occurrence: JP)
  Receive Date: 20211103
  Receipt Date: 20211118
  Transmission Date: 20220303
  Serious: Yes (Other)
  Sender: FDA-Public Use
  Company Number: JP-ABBVIE-21K-087-4140248-00

PATIENT
  Age: 12 Year
  Sex: Female

DRUGS (2)
  1. HUMIRA [Suspect]
     Active Substance: ADALIMUMAB
     Indication: Crohn^s disease
     Route: 058
  2. USTEKINUMAB RECOMBINANT [Concomitant]
     Indication: Crohn^s disease

REACTIONS (4)
  - Fistula of small intestine [Unknown]
  - Ileal stenosis [Unknown]
  - Surgical failure [Unknown]
  - Drug ineffective [Unknown]
